FAERS Safety Report 6971039-7 (Version None)
Quarter: 2010Q3

REPORT INFORMATION
  Report Type: 
  Country: None (occurrence: None)
  Receive Date: 20100908
  Receipt Date: 20100831
  Transmission Date: 20110219
  Serious: Yes (Other)
  Sender: FDA-Public Use
  Company Number: US-BAXTER-2010BH022568

PATIENT
  Age: 59 Year
  Sex: Male

DRUGS (6)
  1. PHENYLEPHRINE HYDROCHLORIDE [Suspect]
     Indication: HYPOTENSION
     Route: 042
  2. NOREPINEPHRINE BITARTRATE [Suspect]
     Indication: HYPOTENSION
     Route: 042
  3. ISORDIL [Concomitant]
     Indication: PRODUCT USED FOR UNKNOWN INDICATION
     Route: 048
  4. INDERAL [Concomitant]
     Indication: PRODUCT USED FOR UNKNOWN INDICATION
     Route: 048
  5. HYDRALAZINE [Concomitant]
     Indication: PRODUCT USED FOR UNKNOWN INDICATION
     Route: 048
  6. SYNTHROID [Concomitant]
     Indication: HYPOTHYROIDISM
     Route: 048

REACTIONS (1)
  - INFARCTION [None]
